FAERS Safety Report 13129752 (Version 2)
Quarter: 2017Q1

REPORT INFORMATION
  Report Type: Spontaneous
  Country: US (occurrence: US)
  Receive Date: 20170119
  Receipt Date: 20170217
  Transmission Date: 20170428
  Serious: No
  Sender: FDA-Public Use
  Company Number: US-PFIZER INC-2017020478

PATIENT
  Sex: Female

DRUGS (1)
  1. XELJANZ XR [Suspect]
     Active Substance: TOFACITINIB CITRATE
     Dosage: 11 MG, 1X/DAY
     Route: 048

REACTIONS (6)
  - Vision blurred [Unknown]
  - Arthropathy [Unknown]
  - Mouth ulceration [Unknown]
  - Headache [Recovered/Resolved]
  - Pain [Recovered/Resolved]
  - Arthralgia [Unknown]
